FAERS Safety Report 6027447-4 (Version None)
Quarter: 2009Q1

REPORT INFORMATION
  Report Type: 
  Country: None (occurrence: None)
  Receive Date: 20090105
  Receipt Date: 20081223
  Transmission Date: 20090719
  Serious: Yes (Death, Life-Threatening, Hospitalization)
  Sender: FDA-Public Use
  Company Number: LT-SANOFI-SYNTHELABO-A01200816474

PATIENT
  Age: 76 Year
  Sex: Female

DRUGS (5)
  1. METHOTREXATE [Concomitant]
     Indication: RHEUMATOID ARTHRITIS
     Dosage: UNK
     Route: 065
     Dates: start: 19990101
  2. AZATHIOPRINE [Concomitant]
     Indication: CONNECTIVE TISSUE DISORDER
     Dosage: UNK
     Route: 065
     Dates: start: 20030101
  3. PREDNISOLONE [Concomitant]
     Indication: RHEUMATOID ARTHRITIS
     Dosage: UNK
     Route: 065
     Dates: start: 19990101
  4. PLAQUENIL [Suspect]
     Indication: CONNECTIVE TISSUE DISORDER
     Route: 048
     Dates: start: 20030101, end: 20030101
  5. PLAQUENIL [Suspect]
     Route: 048
     Dates: start: 20080301

REACTIONS (10)
  - ASTHENIA [None]
  - DEPRESSED LEVEL OF CONSCIOUSNESS [None]
  - DYSPNOEA [None]
  - HAEMANGIOMA [None]
  - HYPOTENSION [None]
  - KERATITIS [None]
  - PULMONARY FIBROSIS [None]
  - PYREXIA [None]
  - SEPTIC SHOCK [None]
  - TACHYCARDIA [None]
